FAERS Safety Report 14796425 (Version 3)
Quarter: 2018Q4

REPORT INFORMATION
  Report Type: Report from Study
  Country: US (occurrence: US)
  Receive Date: 20180423
  Receipt Date: 20181001
  Transmission Date: 20190204
  Serious: Yes (Other)
  Sender: FDA-Public Use
  Company Number: US-AMGEN-USASL2018045162

PATIENT
  Age: 86 Year
  Sex: Female

DRUGS (1)
  1. REPATHA [Suspect]
     Active Substance: EVOLOCUMAB
     Indication: PRODUCT USED FOR UNKNOWN INDICATION
     Dosage: UNK
     Route: 065
     Dates: start: 201709, end: 20180218

REACTIONS (9)
  - Rash pruritic [Not Recovered/Not Resolved]
  - Oropharyngeal pain [Unknown]
  - Bladder cancer [Unknown]
  - Asthenia [Unknown]
  - Back pain [Unknown]
  - Haematological malignancy [Unknown]
  - Swelling [Unknown]
  - Weight decreased [Unknown]
  - Muscle atrophy [Unknown]

NARRATIVE: CASE EVENT DATE: 201803
